FAERS Safety Report 25435881 (Version 1)
Quarter: 2025Q2

REPORT INFORMATION
  Report Type: Spontaneous
  Country: GB (occurrence: GB)
  Receive Date: 20250613
  Receipt Date: 20250613
  Transmission Date: 20250716
  Serious: Yes (Other)
  Sender: HIKMA
  Company Number: GB-MHRA-35768336

PATIENT
  Age: 79 Year
  Sex: Male

DRUGS (3)
  1. LEVETIRACETAM [Suspect]
     Active Substance: LEVETIRACETAM
     Dosage: 500 MILLIGRAM, QD
     Route: 065
  2. LEVETIRACETAM [Suspect]
     Active Substance: LEVETIRACETAM
     Indication: Epilepsy
     Dosage: 500 MILLIGRAM, BID
     Route: 065
  3. LEVETIRACETAM [Suspect]
     Active Substance: LEVETIRACETAM
     Dosage: 750 MILLIGRAM, QD
     Route: 065

REACTIONS (9)
  - Skin exfoliation [Unknown]
  - Polyuria [Unknown]
  - Rash papular [Recovered/Resolved]
  - Alopecia [Unknown]
  - Depression [Unknown]
  - Anger [Unknown]
  - Contusion [Recovered/Resolved]
  - Rash pruritic [Unknown]
  - Constipation [Recovered/Resolved]
